FAERS Safety Report 8034465-3 (Version None)
Quarter: 2012Q1

REPORT INFORMATION
  Report Type: 
  Country: None (occurrence: None)
  Receive Date: 20120110
  Receipt Date: 20120103
  Transmission Date: 20120608
  Serious: Yes (Hospitalization, Other)
  Sender: FDA-Public Use
  Company Number: US-MPIJNJ-2012-00017

PATIENT
  Sex: Male

DRUGS (10)
  1. ASPIRIN [Concomitant]
     Indication: PRODUCT USED FOR UNKNOWN INDICATION
  2. HYDROCHLOROTHIAZIDE [Concomitant]
     Indication: PRODUCT USED FOR UNKNOWN INDICATION
  3. POTASSIUM CHLORIDE [Concomitant]
     Indication: PRODUCT USED FOR UNKNOWN INDICATION
  4. BACTRIM DS [Concomitant]
     Indication: PRODUCT USED FOR UNKNOWN INDICATION
  5. AMLODIPINE [Concomitant]
     Indication: PRODUCT USED FOR UNKNOWN INDICATION
  6. DEXAMETHASONE [Concomitant]
     Indication: LEUKAEMIA PLASMACYTIC
  7. ACYCLOVIR [Concomitant]
     Indication: PRODUCT USED FOR UNKNOWN INDICATION
  8. SIMVASTATIN [Concomitant]
     Indication: PRODUCT USED FOR UNKNOWN INDICATION
  9. VELCADE [Suspect]
     Indication: LEUKAEMIA PLASMACYTIC
     Dosage: UNK
  10. THALOMID [Suspect]
     Indication: LEUKAEMIA PLASMACYTIC
     Dosage: 200 MG, QD
     Route: 048
     Dates: start: 20110428, end: 20110511

REACTIONS (5)
  - LEUKAEMIA RECURRENT [None]
  - NEUTROPENIA [None]
  - PLASMACYTOMA [None]
  - PANCYTOPENIA [None]
  - RENAL FAILURE ACUTE [None]
